FAERS Safety Report 6270673-X (Version None)
Quarter: 2009Q3

REPORT INFORMATION
  Report Type: 
  Country: None (occurrence: None)
  Receive Date: 20090716
  Receipt Date: 20090707
  Transmission Date: 20100115
  Serious: Yes (Other)
  Sender: FDA-Public Use
  Company Number: PHHY2009DE27737

PATIENT
  Age: 79 Year
  Sex: Male

DRUGS (1)
  1. ACLASTA [Suspect]
     Dosage: ONCE YEARLY
     Route: 042
     Dates: start: 20090611

REACTIONS (3)
  - CHILLS [None]
  - LOSS OF CONSCIOUSNESS [None]
  - NAUSEA [None]
